FAERS Safety Report 23679835 (Version 1)
Quarter: 2024Q1

REPORT INFORMATION
  Report Type: Spontaneous
  Country: IT (occurrence: IT)
  Receive Date: 20240327
  Receipt Date: 20240327
  Transmission Date: 20240410
  Serious: Yes (Hospitalization)
  Sender: FDA-Public Use
  Company Number: None

PATIENT
  Age: 71 Year
  Sex: Female
  Weight: 75 kg

DRUGS (3)
  1. KISQALI [Suspect]
     Active Substance: RIBOCICLIB
     Indication: Breast cancer
     Dosage: UNK UNK, ONCE/SINGLE 200 MG - 3 CPR/DIE
     Route: 048
     Dates: start: 20231115, end: 20240128
  2. INDAPAMIDE [Concomitant]
     Active Substance: INDAPAMIDE
     Indication: Hypertension
     Dosage: 1.5 MG 1 CPR/DIE
     Route: 048
  3. LETRIX [Concomitant]
     Indication: Breast cancer
     Dosage: 2.50 MG - 1 CPR/DIE
     Route: 048

REACTIONS (3)
  - Hepatitis acute [Recovering/Resolving]
  - Hypertransaminasaemia [Not Recovered/Not Resolved]
  - Aphthous ulcer [Recovered/Resolved]

NARRATIVE: CASE EVENT DATE: 20240122
